FAERS Safety Report 8915775 (Version 1)
Quarter: 2012Q4

REPORT INFORMATION
  Report Type: 
  Country: US (occurrence: US)
  Receive Date: 20121119
  Receipt Date: 20121119
  Transmission Date: 20130627
  Serious: No
  Sender: FDA-Public Use
  Company Number: US-PFIZER INC-2012288462

PATIENT
  Age: 95 Year
  Sex: Female
  Weight: 54 kg

DRUGS (5)
  1. GABAPENTIN [Suspect]
     Indication: SWELLING OF FEET
     Dosage: 100 mg, 1x/day
     Route: 048
     Dates: start: 2010
  2. GABAPENTIN [Suspect]
     Indication: PAINFUL FEET
  3. AMLODIPINE [Concomitant]
     Dosage: UNK
  4. ALPRAZOLAM [Concomitant]
     Dosage: UNK
  5. SIMVASTATIN [Concomitant]
     Dosage: UNK

REACTIONS (2)
  - Alopecia [Not Recovered/Not Resolved]
  - Hair growth abnormal [Not Recovered/Not Resolved]
